FAERS Safety Report 16528705 (Version 1)
Quarter: 2019Q3

REPORT INFORMATION
  Report Type: Spontaneous
  Country: JP (occurrence: JP)
  Receive Date: 20190703
  Receipt Date: 20190703
  Transmission Date: 20191004
  Serious: Yes (Hospitalization, Other)
  Sender: FDA-Public Use
  Company Number: JP-ASTELLAS-2019JP008101

PATIENT
  Age: 71 Year
  Sex: Male

DRUGS (1)
  1. GRACEPTOR [Suspect]
     Active Substance: TACROLIMUS
     Indication: PRODUCT USED FOR UNKNOWN INDICATION
     Dosage: 1 MG, ONCE DAILY, DAYTIME
     Route: 048

REACTIONS (4)
  - Off label use [Unknown]
  - Dysphagia [Not Recovered/Not Resolved]
  - Graft versus host disease [Unknown]
  - Central venous catheterisation [Unknown]
